FAERS Safety Report 24641484 (Version 1)
Quarter: 2024Q4

REPORT INFORMATION
  Report Type: Spontaneous
  Country: AU (occurrence: AU)
  Receive Date: 20241120
  Receipt Date: 20241120
  Transmission Date: 20250115
  Serious: Yes (Other)
  Sender: STRIDES
  Company Number: AU-STRIDES ARCOLAB LIMITED-2024SP015003

PATIENT
  Age: 43 Year
  Sex: Female

DRUGS (10)
  1. PREDNISOLONE [Suspect]
     Active Substance: PREDNISOLONE
     Indication: Paraneoplastic encephalomyelitis
     Dosage: 25 MILLIGRAM, QD
     Route: 065
  2. PREDNISOLONE [Suspect]
     Active Substance: PREDNISOLONE
     Dosage: UNK (WEANED OFF)
     Route: 065
  3. MYCOPHENOLATE MOFETIL [Suspect]
     Active Substance: MYCOPHENOLATE MOFETIL
     Indication: Paraneoplastic encephalomyelitis
     Dosage: UNK
     Route: 065
  4. DEXAMETHASONE [Suspect]
     Active Substance: DEXAMETHASONE
     Indication: Paraneoplastic encephalomyelitis
     Dosage: 8 MILLIGRAM, QD
     Route: 042
  5. METHOTREXATE [Concomitant]
     Active Substance: METHOTREXATE
     Indication: Rheumatoid arthritis
     Dosage: 20 MILLIGRAM, ONCE A WEEK
     Route: 065
  6. Immunoglobulin [Concomitant]
     Indication: Paraneoplastic encephalomyelitis
     Dosage: UNK
     Route: 042
  7. Immunoglobulin [Concomitant]
     Dosage: UNK
     Route: 042
  8. Immunoglobulin [Concomitant]
     Dosage: UNK (WEANED OFF)
     Route: 042
  9. RITUXIMAB [Concomitant]
     Active Substance: RITUXIMAB
     Indication: Paraneoplastic encephalomyelitis
     Dosage: 375 MILLIGRAM/SQ. METER
     Route: 065
  10. RITUXIMAB [Concomitant]
     Active Substance: RITUXIMAB
     Dosage: UNK
     Route: 065

REACTIONS (3)
  - Osteopenia [Recovered/Resolved]
  - Lumbar vertebral fracture [Unknown]
  - Off label use [Unknown]
